FAERS Safety Report 20060052 (Version 1)
Quarter: 2021Q4

REPORT INFORMATION
  Report Type: Spontaneous
  Country: US (occurrence: US)
  Receive Date: 20211111
  Receipt Date: 20211111
  Transmission Date: 20220303
  Serious: Yes (Death, Life-Threatening, Other)
  Sender: FDA-Public Use
  Company Number: US-AMGEN-USASP2021173342

PATIENT

DRUGS (3)
  1. FILGRASTIM [Suspect]
     Active Substance: FILGRASTIM
     Indication: Prophylaxis
     Dosage: 5 MICROGRAM/KILOGRAM, QD
     Route: 058
  2. CYTARABINE [Suspect]
     Active Substance: CYTARABINE
     Indication: Acute myeloid leukaemia
     Dosage: UNK UNK, QD FOR 5 DAYS AT 1 GRAM PER SQUARE METRE, 2 GRAM PER SQUARE METRE DOSE, ADMINISTERED OVER T
     Route: 042
  3. CLOFARABINE [Suspect]
     Active Substance: CLOFARABINE
     Indication: Acute myeloid leukaemia
     Dosage: UNK UNK, QD FOR 5 DAYS INFUSED OVER AN HOUR (15, 20, AND 25 MILLIGRAM/SQ. METER DOSE)
     Route: 042

REACTIONS (13)
  - Death [Fatal]
  - Bacterial infection [Fatal]
  - Fungal infection [Fatal]
  - Pulmonary toxicity [Unknown]
  - Transaminases increased [Unknown]
  - Hyperbilirubinaemia [Unknown]
  - Skin toxicity [Unknown]
  - Nephropathy toxic [Unknown]
  - Neuropathy peripheral [Unknown]
  - Tumour lysis syndrome [Unknown]
  - Gastrointestinal toxicity [Unknown]
  - Pain [Unknown]
  - Therapeutic product effect incomplete [Unknown]
